FAERS Safety Report 9158245 (Version 2)
Quarter: 2013Q3

REPORT INFORMATION
  Report Type: Spontaneous
  Country: GB (occurrence: GB)
  Receive Date: 20130312
  Receipt Date: 20130823
  Transmission Date: 20140515
  Serious: Yes (Hospitalization, Other)
  Sender: FDA-Public Use
  Company Number: GB-ROCHE-1200605

PATIENT
  Age: 49 Month
  Sex: Male
  Weight: 80 kg

DRUGS (4)
  1. COPEGUS [Suspect]
     Indication: HEPATITIS C
     Route: 065
  2. PEGASYS [Suspect]
     Indication: HEPATITIS C
     Route: 065
  3. VICTRELIS [Suspect]
     Indication: HEPATITIS C
     Route: 048
  4. EPADERM [Concomitant]
     Route: 065
     Dates: start: 20130307

REACTIONS (4)
  - Blister [Not Recovered/Not Resolved]
  - Rash [Not Recovered/Not Resolved]
  - Skin disorder [Unknown]
  - Pyrexia [Unknown]
